FAERS Safety Report 6450061-3 (Version None)
Quarter: 2009Q4

REPORT INFORMATION
  Report Type: 
  Country: None (occurrence: None)
  Receive Date: 20091123
  Receipt Date: 20091117
  Transmission Date: 20100525
  Serious: Yes (Life-Threatening, Hospitalization, Other)
  Sender: FDA-Public Use
  Company Number: BR-ELI_LILLY_AND_COMPANY-BR200911004554

PATIENT
  Age: 72 Year
  Sex: Female

DRUGS (1)
  1. HUMALOG MIX 75/25 [Suspect]
     Indication: DIABETES MELLITUS
     Dosage: UNK, UNKNOWN
     Route: 065

REACTIONS (6)
  - FATIGUE [None]
  - HOSPITALISATION [None]
  - PAIN IN EXTREMITY [None]
  - VISION BLURRED [None]
  - VISUAL ACUITY REDUCED [None]
  - WOUND [None]
